FAERS Safety Report 10175975 (Version 1)
Quarter: 2014Q2

REPORT INFORMATION
  Report Type: Spontaneous
  Country: US (occurrence: None)
  Receive Date: 20140515
  Receipt Date: 20140515
  Transmission Date: 20141212
  Serious: Yes (Hospitalization)
  Sender: FDA-Public Use
  Company Number: None

PATIENT
  Age: 69 Year
  Sex: Female

DRUGS (12)
  1. TASIGNA [Suspect]
     Indication: PRODUCT USED FOR UNKNOWN INDICATION
     Dosage: EVERY 12 HOURS
     Route: 048
     Dates: start: 20121213
  2. MICARDIS [Concomitant]
  3. SENNA [Concomitant]
  4. KLOR CON M [Concomitant]
  5. METOCLAMPRAMIDE [Concomitant]
  6. METOLOZAONE [Concomitant]
  7. TORSEMIDE [Concomitant]
  8. LEVOTHYROXINE [Concomitant]
  9. PRENATABS [Concomitant]
  10. OMEPRAZOLE [Concomitant]
  11. IRON [Concomitant]
  12. NEURONTIN [Concomitant]

REACTIONS (1)
  - Investigation [None]
